FAERS Safety Report 4704058-1 (Version None)
Quarter: 2005Q2

REPORT INFORMATION
  Report Type: 
  Country: None (occurrence: None)
  Receive Date: 20050629
  Receipt Date: 20031211
  Transmission Date: 20051028
  Serious: Yes (Hospitalization)
  Sender: FDA-Public Use
  Company Number: 6883

PATIENT
  Age: 62 Year
  Sex: Male

DRUGS (1)
  1. GLYCERLY TRINITRATE [Suspect]
     Dosage: TD
     Route: 062

REACTIONS (5)
  - CELLULITIS [None]
  - DRUG INEFFECTIVE [None]
  - MEDIASTINITIS [None]
  - TACHYCARDIA [None]
  - TACHYPNOEA [None]
